FAERS Safety Report 9000174 (Version 1)
Quarter: 2013Q1

REPORT INFORMATION
  Report Type: Spontaneous
  Country: US (occurrence: US)
  Receive Date: 20130102
  Receipt Date: 20130102
  Transmission Date: 20140127
  Serious: No
  Sender: FDA-Public Use
  Company Number: US-009507513-1212USA010080

PATIENT
  Sex: 0

DRUGS (3)
  1. COSOPT [Suspect]
     Dosage: UNK
     Route: 047
  2. COSOPT [Concomitant]
     Dosage: UNK
     Route: 047
     Dates: start: 1999
  3. XALATAN [Concomitant]
     Dosage: UNK
     Dates: start: 1999

REACTIONS (2)
  - Inflammation [Unknown]
  - Intraocular pressure increased [Unknown]
